FAERS Safety Report 5640159-1 (Version None)
Quarter: 2008Q1

REPORT INFORMATION
  Report Type: 
  Country: None (occurrence: None)
  Receive Date: 20080226
  Receipt Date: 20080226
  Transmission Date: 20080703
  Serious: Yes (Hospitalization, Other)
  Sender: FDA-Public Use
  Company Number: None

PATIENT
  Age: 87 Year
  Sex: Female
  Weight: 63.5036 kg

DRUGS (1)
  1. AVELOX [Suspect]
     Indication: PNEUMONIA
     Dosage: 1 PILL PER DAY
     Dates: start: 20080108, end: 20080112

REACTIONS (8)
  - CANDIDIASIS [None]
  - CONDITION AGGRAVATED [None]
  - FEELING OF DESPAIR [None]
  - FLUID RETENTION [None]
  - HEART RATE INCREASED [None]
  - HEART RATE IRREGULAR [None]
  - JOINT SWELLING [None]
  - WALKING AID USER [None]
